FAERS Safety Report 23120256 (Version 1)
Quarter: 2023Q4

REPORT INFORMATION
  Report Type: Spontaneous
  Country: US (occurrence: US)
  Receive Date: 20231029
  Receipt Date: 20231029
  Transmission Date: 20240110
  Serious: No
  Sender: FDA-Public Use
  Company Number: US-OPELLA-2023OHG009401

PATIENT

DRUGS (4)
  1. XYZAL ALLERGY 24HR [Suspect]
     Active Substance: LEVOCETIRIZINE DIHYDROCHLORIDE
     Indication: Sinusitis
  2. XYZAL ALLERGY 24HR [Suspect]
     Active Substance: LEVOCETIRIZINE DIHYDROCHLORIDE
     Indication: Headache
  3. XYZAL ALLERGY 24HR [Suspect]
     Active Substance: LEVOCETIRIZINE DIHYDROCHLORIDE
     Indication: Lacrimation increased
  4. XYZAL ALLERGY 24HR [Suspect]
     Active Substance: LEVOCETIRIZINE DIHYDROCHLORIDE
     Indication: Oropharyngeal pain

REACTIONS (2)
  - Therapeutic response unexpected [Unknown]
  - No adverse event [Unknown]
